FAERS Safety Report 11374551 (Version 1)
Quarter: 2015Q3

REPORT INFORMATION
  Report Type: Spontaneous
  Country: US (occurrence: None)
  Receive Date: 20150812
  Receipt Date: 20150812
  Transmission Date: 20151125
  Serious: No
  Sender: FDA-Public Use
  Company Number: None

PATIENT
  Age: 50 Year
  Sex: Male

DRUGS (13)
  1. TIZANDINE (TIZANDINE HYDROCHLORIDE) [Concomitant]
     Active Substance: TIZANIDINE HYDROCHLORIDE
  2. DIPJENOXYLATE-ATROPINE [Concomitant]
  3. LORAZEPAM. [Concomitant]
     Active Substance: LORAZEPAM
  4. GABAPENTIN. [Concomitant]
     Active Substance: GABAPENTIN
  5. IBUPROFEN. [Concomitant]
     Active Substance: IBUPROFEN
  6. AMPYRA [Suspect]
     Active Substance: DALFAMPRIDINE
     Indication: MULTIPLE SCLEROSIS
     Route: 048
     Dates: start: 201006
  7. RITUXIMAB [Concomitant]
     Active Substance: RITUXIMAB
  8. BUPROPION. [Concomitant]
     Active Substance: BUPROPION
  9. MELOXICAM. [Concomitant]
     Active Substance: MELOXICAM
  10. APAP [Concomitant]
     Active Substance: ACETAMINOPHEN
  11. DIAZEPAM. [Concomitant]
     Active Substance: DIAZEPAM
  12. MIRTAZAPINE. [Concomitant]
     Active Substance: MIRTAZAPINE
  13. TEMAZEPAM. [Concomitant]
     Active Substance: TEMAZEPAM

REACTIONS (1)
  - Laboratory test abnormal [None]

NARRATIVE: CASE EVENT DATE: 20150717
